FAERS Safety Report 8076357-X (Version None)
Quarter: 2012Q1

REPORT INFORMATION
  Report Type: 
  Country: None (occurrence: None)
  Receive Date: 20120127
  Receipt Date: 20120118
  Transmission Date: 20120608
  Serious: Yes (Hospitalization)
  Sender: FDA-Public Use
  Company Number: CA-ROCHE-1032310

PATIENT
  Sex: Female
  Weight: 73.094 kg

DRUGS (16)
  1. HERCEPTIN [Suspect]
     Indication: BREAST CANCER METASTATIC
     Route: 042
     Dates: start: 20080101
  2. HERCEPTIN [Suspect]
     Route: 042
     Dates: start: 20120106
  3. LYRICA [Concomitant]
  4. DOCETAXEL [Suspect]
     Indication: PRODUCT USED FOR UNKNOWN INDICATION
     Route: 065
     Dates: start: 20110701
  5. PREVACID [Concomitant]
  6. DOMPERIDONE [Concomitant]
  7. DECADRON [Concomitant]
  8. SYNTHROID [Concomitant]
  9. METFORMIN HCL [Concomitant]
  10. DIAMICRON [Concomitant]
  11. HERCEPTIN [Suspect]
     Route: 042
     Dates: start: 20111007
  12. PROCHLORPERAZINE [Concomitant]
  13. ONDANSETRON HCL [Concomitant]
  14. HERCEPTIN [Suspect]
     Dosage: LOADING DOSE
     Route: 042
     Dates: start: 20110916
  15. CRESTOR [Concomitant]
  16. HYDROMORPHONE HCL [Concomitant]

REACTIONS (5)
  - OEDEMA [None]
  - STAPHYLOCOCCAL BACTERAEMIA [None]
  - DEHYDRATION [None]
  - ASTHENIA [None]
  - EPISTAXIS [None]
